FAERS Safety Report 7876398-9 (Version None)
Quarter: 2011Q4

REPORT INFORMATION
  Report Type: 
  Country: None (occurrence: None)
  Receive Date: 20111031
  Receipt Date: 20111020
  Transmission Date: 20120403
  Serious: Yes (Other)
  Sender: FDA-Public Use
  Company Number: FR-ASTRAZENECA-2011SE64161

PATIENT
  Age: 61 Year
  Sex: Female

DRUGS (5)
  1. CORDARONE [Suspect]
     Indication: ATRIAL FIBRILLATION
     Route: 042
     Dates: start: 20110729, end: 20110803
  2. CHLORPROMAZINE HCL [Suspect]
     Indication: SEDATION
     Route: 042
     Dates: start: 20110729, end: 20110804
  3. MIDAZOLAM HCL [Suspect]
     Indication: SEDATION
     Route: 042
     Dates: start: 20110729, end: 20110804
  4. DIPRIVAN [Suspect]
     Indication: SEDATION
     Route: 042
     Dates: start: 20110729, end: 20110804
  5. SUFENTA PRESERVATIVE FREE [Suspect]
     Indication: SEDATION
     Route: 042
     Dates: start: 20110729, end: 20110804

REACTIONS (2)
  - INFUSION SITE ULCER [None]
  - INFUSION SITE EXTRAVASATION [None]
